FAERS Safety Report 15431943 (Version 1)
Quarter: 2018Q3

REPORT INFORMATION
  Report Type: Spontaneous
  Country: US (occurrence: US)
  Receive Date: 20180926
  Receipt Date: 20180926
  Transmission Date: 20181010
  Serious: Yes (Hospitalization)
  Sender: FDA-Public Use
  Company Number: US-OTSUKA-2018_029183

PATIENT
  Sex: Male

DRUGS (2)
  1. ABILIFY [Suspect]
     Active Substance: ARIPIPRAZOLE
     Indication: BIPOLAR DISORDER
  2. ABILIFY [Suspect]
     Active Substance: ARIPIPRAZOLE
     Indication: SCHIZOPHRENIA
     Dosage: 15 MG, QD
     Route: 065
     Dates: start: 2004, end: 2016

REACTIONS (14)
  - Mental disorder [Unknown]
  - Compulsive shopping [Not Recovered/Not Resolved]
  - Dermatillomania [Not Recovered/Not Resolved]
  - Eating disorder [Not Recovered/Not Resolved]
  - Divorced [Unknown]
  - Loss of employment [Unknown]
  - Shoplifting [Unknown]
  - Compulsive sexual behaviour [Not Recovered/Not Resolved]
  - Gambling disorder [Not Recovered/Not Resolved]
  - Compulsive hoarding [Not Recovered/Not Resolved]
  - Economic problem [Unknown]
  - Obsessive-compulsive disorder [Not Recovered/Not Resolved]
  - Theft [Unknown]
  - Trichotillomania [Not Recovered/Not Resolved]
